FAERS Safety Report 5593738-4 (Version None)
Quarter: 2007Q4

REPORT INFORMATION
  Report Type: 
  Country: None (occurrence: None)
  Receive Date: 20071218
  Receipt Date: 20070702
  Transmission Date: 20080405
  Serious: Yes (Hospitalization, Other)
  Sender: FDA-Public Use
  Company Number: 2006152500

PATIENT
  Age: 39 Year
  Sex: Female
  Weight: 91.6 kg

DRUGS (6)
  1. BEXTRA [Suspect]
     Indication: OSTEOARTHRITIS
     Dosage: 10 MG (10 MG,1 IN 1 D)
     Dates: start: 20030815, end: 20030922
  2. VIOXX [Suspect]
     Indication: ARTHRITIS
     Dosage: 1-2 TIMES (25 MG,1 D),ORAL
     Route: 048
     Dates: start: 20001231
  3. ESTRATEST [Concomitant]
  4. HYDROCODONE (HYDROCODONE) [Concomitant]
  5. NABUMETONE [Concomitant]
  6. HYDROCHLOROTHIAZIDE [Concomitant]

REACTIONS (1)
  - MYOCARDIAL INFARCTION [None]
